FAERS Safety Report 18804474 (Version 2)
Quarter: 2022Q1

REPORT INFORMATION
  Report Type: Spontaneous
  Country: US (occurrence: US)
  Receive Date: 20210129
  Receipt Date: 20220223
  Transmission Date: 20220424
  Serious: No
  Sender: FDA-Public Use
  Company Number: US-UCBSA-2020038762

PATIENT
  Sex: Female
  Weight: 81.64 kg

DRUGS (1)
  1. KEPPRA [Suspect]
     Active Substance: LEVETIRACETAM
     Indication: Seizure
     Dosage: 500 MILLIGRAM, 2X/DAY (BID)
     Route: 048
     Dates: start: 2016, end: 2017

REACTIONS (4)
  - Dizziness [Recovered/Resolved]
  - Confusional state [Recovered/Resolved]
  - Gait disturbance [Recovered/Resolved]
  - Disorientation [Recovered/Resolved]
